FAERS Safety Report 9541692 (Version 1)
Quarter: 2013Q3

REPORT INFORMATION
  Report Type: Spontaneous
  Country: US (occurrence: US)
  Receive Date: 20130923
  Receipt Date: 20130923
  Transmission Date: 20140515
  Serious: Yes (Other)
  Sender: FDA-Public Use
  Company Number: US-SANOFI-AVENTIS-2013SA091574

PATIENT
  Sex: Female

DRUGS (3)
  1. LANTUS [Suspect]
     Route: 051
  2. LANTUS SOLOSTAR [Suspect]
     Indication: TYPE 2 DIABETES MELLITUS
     Dosage: DOSE:55 UNIT(S)
     Route: 058
  3. SOLOSTAR [Concomitant]

REACTIONS (4)
  - Cataract [Recovered/Resolved]
  - Visual impairment [Recovered/Resolved]
  - Implant site mass [Recovered/Resolved]
  - Blood glucose decreased [Unknown]
